FAERS Safety Report 7527507-2 (Version None)
Quarter: 2011Q2

REPORT INFORMATION
  Report Type: 
  Country: None (occurrence: None)
  Receive Date: 20110607
  Receipt Date: 20110125
  Transmission Date: 20111010
  Serious: Yes (Hospitalization, Other)
  Sender: FDA-Public Use
  Company Number: US-BAYER-201020233NA

PATIENT
  Age: 28 Year
  Sex: Female
  Weight: 70.295 kg

DRUGS (3)
  1. YASMIN [Suspect]
     Indication: ORAL CONTRACEPTION
     Dosage: UNK
     Dates: start: 20030811, end: 20090601
  2. YASMIN [Suspect]
     Dosage: UNK
     Dates: start: 20090324
  3. YAZ [Suspect]

REACTIONS (4)
  - CHOLECYSTITIS CHRONIC [None]
  - CHOLECYSTITIS ACUTE [None]
  - CHOLELITHIASIS [None]
  - GALLBLADDER DISORDER [None]
